FAERS Safety Report 10043300 (Version 1)
Quarter: 2014Q1

REPORT INFORMATION
  Report Type: Spontaneous
  Country: BR (occurrence: BR)
  Receive Date: 20140328
  Receipt Date: 20140328
  Transmission Date: 20141002
  Serious: Yes (Other)
  Sender: FDA-Public Use
  Company Number: BR-ACCORD-022732

PATIENT
  Age: 55 Year
  Sex: Female

DRUGS (3)
  1. TACROLIMUS [Suspect]
     Indication: PRODUCT USED FOR UNKNOWN INDICATION
     Dosage: THE PATIENT HAD 150 MG/DAY PREVIOUSLY.
  2. PREDNISONE/PREDNISONE ACETATE [Suspect]
     Indication: PRODUCT USED FOR UNKNOWN INDICATION
     Dosage: THE PATIENT HAD 60 MG PREVIOUSLY.
  3. AZATHIOPRINE/AZATHIOPRINE SODIUM [Suspect]
     Indication: PRODUCT USED FOR UNKNOWN INDICATION
     Dosage: THE PATIENT HAD 2 MG/DAY PREVIOUSLY.

REACTIONS (1)
  - Phaehyphomycosis [Recovering/Resolving]
